FAERS Safety Report 7246201-9 (Version None)
Quarter: 2011Q1

REPORT INFORMATION
  Report Type: 
  Country: None (occurrence: None)
  Receive Date: 20110126
  Receipt Date: 20110119
  Transmission Date: 20110831
  Serious: Yes (Life-Threatening)
  Sender: FDA-Public Use
  Company Number: B0694314A

PATIENT
  Sex: Female

DRUGS (14)
  1. SORIATANE [Suspect]
     Indication: ERYTHRODERMIC PSORIASIS
     Route: 048
     Dates: start: 20101208
  2. NOVOMIX [Suspect]
     Dosage: 68IU PER DAY
     Route: 058
  3. VASTAREL [Concomitant]
  4. PYOSTACINE [Concomitant]
     Indication: STAPHYLOCOCCAL SKIN INFECTION
     Dates: start: 20101206, end: 20101215
  5. CETIRIZINE HCL [Concomitant]
  6. ASPEGIC 325 [Concomitant]
  7. SECTRAL [Concomitant]
  8. DALIBOUR [Concomitant]
     Indication: ERYTHRODERMIC PSORIASIS
     Route: 061
     Dates: start: 20101208
  9. GABAPENTIN [Concomitant]
  10. BETNEVAL [Suspect]
     Indication: ERYTHRODERMIC PSORIASIS
     Route: 061
     Dates: start: 20101208
  11. AMLODIPINE [Concomitant]
  12. PLAVIX [Concomitant]
  13. DISCOTRINE [Concomitant]
  14. TROLAMINE [Concomitant]
     Indication: ERYTHRODERMIC PSORIASIS
     Route: 061
     Dates: start: 20101208

REACTIONS (3)
  - DRUG INTERACTION [None]
  - LOSS OF CONSCIOUSNESS [None]
  - HYPOGLYCAEMIC SEIZURE [None]
